FAERS Safety Report 5190906-0 (Version None)
Quarter: 2006Q4

REPORT INFORMATION
  Report Type: 
  Country: None (occurrence: None)
  Receive Date: 20061222
  Receipt Date: 20061109
  Transmission Date: 20070319
  Serious: Yes (Hospitalization)
  Sender: FDA-Public Use
  Company Number: US-AMGEN-US199921

PATIENT
  Sex: Male
  Weight: 101.7 kg

DRUGS (3)
  1. ENBREL [Suspect]
     Indication: PSORIASIS
     Route: 058
     Dates: start: 20020301
  2. ALLEGRA [Concomitant]
  3. NASONEX [Concomitant]

REACTIONS (2)
  - BACK PAIN [None]
  - FOLLICULITIS [None]
